FAERS Safety Report 15798701 (Version 1)
Quarter: 2019Q1

REPORT INFORMATION
  Report Type: Spontaneous
  Country: US (occurrence: US)
  Receive Date: 20190108
  Receipt Date: 20190108
  Transmission Date: 20190417
  Serious: Yes (Death)
  Sender: FDA-Public Use
  Company Number: None

PATIENT
  Age: 72 Year
  Sex: Male

DRUGS (14)
  1. DIAZEPAM 5MG [Concomitant]
     Active Substance: DIAZEPAM
  2. OMEPRAZOLE 40MG [Concomitant]
     Active Substance: OMEPRAZOLE
  3. MEFORMIN 1000MG [Concomitant]
  4. METOPROL SUC 25MG [Concomitant]
  5. LOSARTAN POT 25MG [Concomitant]
  6. ROSUVASTATIN 20MG [Concomitant]
     Active Substance: ROSUVASTATIN
  7. FOLIC ACID 1000MCG [Concomitant]
  8. HYDROCO/APAP 10-325MG [Concomitant]
     Active Substance: ACETAMINOPHEN\HYDROCODONE
  9. TERELEGY AER ELLIPTA [Concomitant]
  10. HUMIRA [Suspect]
     Active Substance: ADALIMUMAB
     Indication: RHEUMATOID ARTHRITIS
     Dosage: ?          OTHER FREQUENCY:EVERY OTHER WEEK;?
     Route: 058
     Dates: start: 20180523, end: 20190101
  11. IBUPROFEN 800MG [Concomitant]
     Active Substance: IBUPROFEN
  12. METHOTREXATE 2.5MG [Concomitant]
     Active Substance: METHOTREXATE
  13. ZOLPIDEM [Concomitant]
     Active Substance: ZOLPIDEM\ZOLPIDEM TARTRATE
  14. QVAR REDIHA AER 80MCG [Concomitant]

REACTIONS (1)
  - Death [None]

NARRATIVE: CASE EVENT DATE: 20190101
